FAERS Safety Report 15321609 (Version 1)
Quarter: 2018Q3

REPORT INFORMATION
  Report Type: Spontaneous
  Country: US (occurrence: US)
  Receive Date: 20180827
  Receipt Date: 20180827
  Transmission Date: 20181010
  Serious: No
  Sender: FDA-Public Use
  Company Number: US-MYLANLABS-2018M1061665

PATIENT
  Sex: Male

DRUGS (2)
  1. FENTANYL. [Suspect]
     Active Substance: FENTANYL
     Indication: BACK PAIN
     Dosage: 25 ?G, UNK
     Route: 062
  2. FENTANYL. [Suspect]
     Active Substance: FENTANYL
     Dosage: 37.5 ?G, UNK

REACTIONS (3)
  - Product packaging issue [Unknown]
  - Drug ineffective [Unknown]
  - Drug dose omission [Unknown]
